FAERS Safety Report 11333956 (Version 1)
Quarter: 2015Q3

REPORT INFORMATION
  Report Type: Spontaneous
  Country: US (occurrence: US)
  Receive Date: 20150803
  Receipt Date: 20150803
  Transmission Date: 20151125
  Serious: No
  Sender: FDA-Public Use
  Company Number: US-SA-2014SA051174

PATIENT
  Age: 56 Year
  Sex: Female

DRUGS (8)
  1. AMBIEN [Suspect]
     Active Substance: ZOLPIDEM TARTRATE
     Indication: PRODUCT USED FOR UNKNOWN INDICATION
     Route: 048
  2. HUMIRA [Suspect]
     Active Substance: ADALIMUMAB
     Indication: RHEUMATOID ARTHRITIS
     Route: 065
     Dates: start: 20140303
  3. POTASSIUM [Concomitant]
     Active Substance: POTASSIUM
     Route: 065
  4. HYDROCODONE [Concomitant]
     Active Substance: HYDROCODONE
     Dosage: 4 PILLS PER DAY
     Route: 065
  5. VALIUM [Concomitant]
     Active Substance: DIAZEPAM
     Dosage: 1/2 PILL IN AM + AFTERNOON, 1 PILL AT NIGHT IF NEEDED (3 IN 1 D)
     Route: 065
  6. METHOTREXATE [Concomitant]
     Active Substance: METHOTREXATE
     Dosage: 1 PILL IN 1 WEEK
     Route: 065
  7. FENTANYL. [Concomitant]
     Active Substance: FENTANYL
     Dosage: CHANGE EVERY 2 DAYS (75 MCG)
     Route: 062
  8. LASIX [Concomitant]
     Active Substance: FUROSEMIDE
     Route: 065

REACTIONS (15)
  - Paraesthesia [Unknown]
  - Feeling abnormal [Unknown]
  - Insomnia [Unknown]
  - Arthritis [Unknown]
  - Fatigue [Unknown]
  - Vision blurred [Unknown]
  - Joint swelling [Unknown]
  - Drug ineffective [Unknown]
  - Dizziness [Unknown]
  - Burning sensation [Unknown]
  - Hypoaesthesia [Unknown]
  - Weight decreased [Unknown]
  - Decreased appetite [Unknown]
  - Lethargy [Unknown]
  - Pain [Unknown]

NARRATIVE: CASE EVENT DATE: 20140303
